FAERS Safety Report 9281005 (Version 4)
Quarter: 2013Q4

REPORT INFORMATION
  Report Type: Spontaneous
  Country: US (occurrence: US)
  Receive Date: 20130509
  Receipt Date: 20131230
  Transmission Date: 20140711
  Serious: Yes (Death, Hospitalization)
  Sender: FDA-Public Use
  Company Number: US-GLAXOSMITHKLINE-A0976961A

PATIENT
  Age: 72 Year
  Sex: Male

DRUGS (2)
  1. FLOLAN [Suspect]
     Indication: PULMONARY ARTERIAL HYPERTENSION
     Dosage: 41.14NGKM UNKNOWN
     Route: 042
     Dates: start: 20060112
  2. COUMADIN [Concomitant]

REACTIONS (8)
  - Haemorrhage [Unknown]
  - Cataract operation [Unknown]
  - Device infusion issue [Unknown]
  - Dyspnoea [Not Recovered/Not Resolved]
  - Oedema [Not Recovered/Not Resolved]
  - Ill-defined disorder [Unknown]
  - Wheezing [Unknown]
  - Death [Fatal]
